FAERS Safety Report 7985646-6 (Version None)
Quarter: 2011Q4

REPORT INFORMATION
  Report Type: 
  Country: None (occurrence: None)
  Receive Date: 20111216
  Receipt Date: 20111215
  Transmission Date: 20120403
  Serious: No
  Sender: FDA-Public Use
  Company Number: US-PFIZER INC-2011305275

PATIENT
  Sex: Male
  Weight: 18.141 kg

DRUGS (2)
  1. CHILDREN'S ADVIL [Suspect]
     Indication: PYREXIA
     Dosage: UNK
     Dates: start: 20111214, end: 20111214
  2. BUDESONIDE [Concomitant]
     Indication: ASTHMA
     Dosage: UNK

REACTIONS (2)
  - PAIN [None]
  - URTICARIA [None]
